FAERS Safety Report 20612511 (Version 2)
Quarter: 2022Q1

REPORT INFORMATION
  Report Type: Spontaneous
  Country: CZ (occurrence: None)
  Receive Date: 20220318
  Receipt Date: 20220324
  Transmission Date: 20220423
  Serious: Yes (Hospitalization)
  Sender: FDA-Public Use
  Company Number: CZ-Merck Healthcare KGaA-9306980

PATIENT
  Age: 51 Year
  Sex: Female

DRUGS (1)
  1. THYROXINE [Suspect]
     Active Substance: LEVOTHYROXINE
     Indication: Papillary thyroid cancer
     Dates: start: 202012

REACTIONS (1)
  - Hypothyroidism [Unknown]

NARRATIVE: CASE EVENT DATE: 20220201
